FAERS Safety Report 21813400 (Version 1)
Quarter: 2023Q1

REPORT INFORMATION
  Report Type: Other
  Country: PL (occurrence: None)
  Receive Date: 20230103
  Receipt Date: 20230103
  Transmission Date: 20230417
  Serious: Yes (Hospitalization)
  Sender: FDA-Public Use
  Company Number: PL-Invatech-000278

PATIENT
  Age: 47 Year
  Sex: Male

DRUGS (1)
  1. AMANTADINE [Suspect]
     Active Substance: AMANTADINE
     Indication: COVID-19
     Dosage: 200 MG/DAY FOR 5 DAYS

REACTIONS (4)
  - Off label use [Recovered/Resolved]
  - Intentional product misuse [Recovered/Resolved]
  - Organic brain syndrome [Recovered/Resolved]
  - Condition aggravated [Recovered/Resolved]
